FAERS Safety Report 25941330 (Version 1)
Quarter: 2025Q4

REPORT INFORMATION
  Report Type: Spontaneous
  Country: US (occurrence: US)
  Receive Date: 20251020
  Receipt Date: 20251020
  Transmission Date: 20260118
  Serious: No
  Sender: INCYTE
  Company Number: CH-EVENT-004504

PATIENT
  Age: 7 Year

DRUGS (1)
  1. OPZELURA [Suspect]
     Active Substance: RUXOLITINIB PHOSPHATE
     Indication: Vitiligo
     Dosage: 1 APPLICATION, BID (2 TIMES PER DAY)

REACTIONS (1)
  - Off label use [Unknown]
